FAERS Safety Report 17482313 (Version 1)
Quarter: 2020Q1

REPORT INFORMATION
  Report Type: Spontaneous
  Country: US (occurrence: US)
  Receive Date: 20200302
  Receipt Date: 20200302
  Transmission Date: 20200409
  Serious: Yes (Other)
  Sender: FDA-Public Use
  Company Number: US-NVP-000079

PATIENT
  Age: 54 Year

DRUGS (8)
  1. ERGOCALCIFEROL. [Concomitant]
     Active Substance: ERGOCALCIFEROL
     Indication: PRODUCT USED FOR UNKNOWN INDICATION
     Route: 065
  2. HYDROXYZINE [Concomitant]
     Active Substance: HYDROXYZINE HYDROCHLORIDE
     Route: 065
  3. UBIDECARENONE [Concomitant]
     Active Substance: UBIDECARENONE
     Indication: PRODUCT USED FOR UNKNOWN INDICATION
     Route: 065
  4. RIFAMPICIN [Concomitant]
     Active Substance: RIFAMPIN
     Indication: LATENT TUBERCULOSIS
     Route: 065
  5. DAPSONE. [Suspect]
     Active Substance: DAPSONE
     Indication: PARANEOPLASTIC PEMPHIGUS
     Route: 065
     Dates: start: 201806
  6. BETAMETHASONE. [Concomitant]
     Active Substance: BETAMETHASONE
     Indication: PARANEOPLASTIC PEMPHIGUS
     Route: 065
  7. CLOBETASOL [Concomitant]
     Active Substance: CLOBETASOL
     Indication: PARANEOPLASTIC PEMPHIGUS
     Route: 065
  8. MUPIROCIN. [Concomitant]
     Active Substance: MUPIROCIN
     Indication: PARANEOPLASTIC PEMPHIGUS
     Route: 065

REACTIONS (3)
  - Disease progression [Recovered/Resolved]
  - Product use in unapproved indication [Unknown]
  - Paraneoplastic pemphigus [Recovered/Resolved]
